FAERS Safety Report 19185298 (Version 2)
Quarter: 2021Q2

REPORT INFORMATION
  Report Type: Spontaneous
  Country: JP (occurrence: JP)
  Receive Date: 20210427
  Receipt Date: 20210609
  Transmission Date: 20210717
  Serious: Yes (Hospitalization)
  Sender: FDA-Public Use
  Company Number: JP-PFIZER INC-2021026786

PATIENT
  Age: 86 Year
  Sex: Male

DRUGS (2)
  1. INLYTA [Suspect]
     Active Substance: AXITINIB
     Dosage: 10 MG, CYCLIC
     Dates: start: 20201125
  2. BAVENCIO [Suspect]
     Active Substance: AVELUMAB
     Indication: RENAL CELL CARCINOMA
     Dosage: UNK UNK, CYCLIC
     Dates: start: 20201125

REACTIONS (5)
  - Inappropriate schedule of product administration [Unknown]
  - Adrenal insufficiency [Recovered/Resolved]
  - Blood pressure increased [Unknown]
  - Diarrhoea [Recovered/Resolved]
  - Asthenia [Unknown]
